FAERS Safety Report 8793911 (Version 2)
Quarter: 2013Q4

REPORT INFORMATION
  Report Type: Spontaneous
  Country: US (occurrence: US)
  Receive Date: 20120918
  Receipt Date: 20131101
  Transmission Date: 20140711
  Serious: Yes (Hospitalization)
  Sender: FDA-Public Use
  Company Number: US-009507513-1209USA003339

PATIENT
  Age: 40 Year
  Sex: Male

DRUGS (17)
  1. ISENTRESS [Suspect]
     Dosage: UNK
     Route: 048
     Dates: start: 20091016
  2. RETROVIR [Suspect]
     Dosage: UNK
  3. STOCRIN [Suspect]
     Dosage: UNK
     Route: 048
     Dates: start: 20040614, end: 20041221
  4. STOCRIN [Suspect]
     Dosage: UNK
     Route: 048
     Dates: start: 20051209
  5. STOCRIN [Suspect]
     Dosage: UNK
  6. EPIVIR [Suspect]
     Dosage: 150 MG, BID
     Route: 048
     Dates: start: 20050722
  7. EPIVIR [Suspect]
     Dosage: 300 MG, UNK
     Dates: start: 20050802
  8. NORVIR [Suspect]
     Dosage: UNK UNK, QD
     Route: 048
     Dates: end: 20050121
  9. NORVIR [Suspect]
     Dosage: UNK
  10. TRUVADA [Suspect]
     Dosage: 1 TABLET, QD
     Route: 048
     Dates: start: 20071214
  11. KALETRA [Suspect]
     Dosage: UNK
     Route: 048
     Dates: end: 20040530
  12. KALETRA [Suspect]
     Dosage: UNK
     Dates: start: 20070511
  13. COMBIVIR [Suspect]
     Dosage: UNK
     Dates: end: 20050121
  14. COMBIVIR [Suspect]
     Dosage: UNK
     Dates: start: 20050622, end: 20050722
  15. REYATAZ [Suspect]
     Dosage: UNK
     Route: 048
     Dates: end: 20050121
  16. REYATAZ [Suspect]
     Dosage: UNK
     Dates: start: 20050622
  17. VIREAD [Suspect]
     Route: 048

REACTIONS (1)
  - Diabetes mellitus [Unknown]
